FAERS Safety Report 4329957-4 (Version None)
Quarter: 2004Q2

REPORT INFORMATION
  Report Type: 
  Country: None (occurrence: None)
  Receive Date: 20040401
  Receipt Date: 20040316
  Transmission Date: 20050107
  Serious: Yes (Hospitalization)
  Sender: FDA-Public Use
  Company Number: JP-MERCK-0403USA01690

PATIENT
  Age: 70 Year
  Sex: Male

DRUGS (5)
  1. [THERAPY UNSPECIFIED] [Concomitant]
     Route: 065
     Dates: start: 20040313
  2. ADONA [Concomitant]
     Route: 042
     Dates: start: 20040313, end: 20040317
  3. PEPCID [Suspect]
     Indication: ULCER
     Route: 042
     Dates: start: 20040313, end: 20040316
  4. FESIN [Concomitant]
     Route: 042
     Dates: start: 20040313, end: 20040322
  5. TRANSAMIN [Concomitant]
     Route: 042
     Dates: start: 20040313, end: 20040317

REACTIONS (3)
  - ENCEPHALOPATHY [None]
  - MYOCLONUS [None]
  - TREMOR [None]
